FAERS Safety Report 7946753-7 (Version None)
Quarter: 2011Q4

REPORT INFORMATION
  Report Type: 
  Country: None (occurrence: None)
  Receive Date: 20111129
  Receipt Date: 20111121
  Transmission Date: 20120403
  Serious: Yes (Hospitalization, Other)
  Sender: FDA-Public Use
  Company Number: FR-ABBOTT-11P-056-0876930-00

PATIENT
  Age: 17 Year
  Sex: Female

DRUGS (2)
  1. DEPAKENE [Suspect]
     Indication: INTENTIONAL OVERDOSE
     Route: 048
  2. DEPAKENE [Suspect]
     Indication: PRODUCT USED FOR UNKNOWN INDICATION

REACTIONS (3)
  - DRUG LEVEL INCREASED [None]
  - SUICIDE ATTEMPT [None]
  - INTENTIONAL OVERDOSE [None]
